FAERS Safety Report 4779463-8 (Version None)
Quarter: 2005Q3

REPORT INFORMATION
  Report Type: 
  Country: None (occurrence: None)
  Receive Date: 20050923
  Receipt Date: 20050916
  Transmission Date: 20060218
  Serious: Yes (Death)
  Sender: FDA-Public Use
  Company Number: USA-2005-0021278

PATIENT
  Sex: Male

DRUGS (1)
  1. MORPHINE SULFATE [Suspect]
     Indication: CANCER PAIN
     Dates: start: 20010801

REACTIONS (3)
  - BRAIN NEOPLASM MALIGNANT [None]
  - CONSTIPATION [None]
  - MALIGNANT NEOPLASM PROGRESSION [None]
